FAERS Safety Report 5092569-1 (Version None)
Quarter: 2006Q3

REPORT INFORMATION
  Report Type: 
  Country: None (occurrence: None)
  Receive Date: 20060828
  Receipt Date: 20060815
  Transmission Date: 20061208
  Serious: Yes (Other)
  Sender: FDA-Public Use
  Company Number: 2006100051

PATIENT
  Sex: Female

DRUGS (4)
  1. DOSTINEX [Suspect]
     Indication: BLOOD PROLACTIN INCREASED
     Dosage: 0.5 MG, 2 IN 1 WK, ORAL
     Route: 048
  2. CABERGOLINE [Suspect]
     Indication: BLOOD PROLACTIN INCREASED
     Dosage: ORAL
     Route: 048
     Dates: start: 20060301
  3. DITROPAN [Concomitant]
  4. VITAMINS [Concomitant]

REACTIONS (5)
  - BLOOD PROLACTIN INCREASED [None]
  - DRUG DOSE OMISSION [None]
  - ENDOMETRIOSIS [None]
  - IMPAIRED HEALING [None]
  - WEIGHT INCREASED [None]
